FAERS Safety Report 12918041 (Version 1)
Quarter: 2016Q4

REPORT INFORMATION
  Report Type: Spontaneous
  Country: US (occurrence: US)
  Receive Date: 20161107
  Receipt Date: 20161107
  Transmission Date: 20170207
  Serious: No
  Sender: FDA-Public Use
  Company Number: US-ALLERGAN-1647956

PATIENT
  Sex: Male

DRUGS (2)
  1. VITAMINS NOS [Concomitant]
     Active Substance: VITAMINS
     Indication: PRODUCT USED FOR UNKNOWN INDICATION
     Dosage: UNK, UNKNOWN
     Route: 065
  2. SILODOSIN UNK [Suspect]
     Active Substance: SILODOSIN
     Indication: POLLAKIURIA
     Dosage: 8 MG, DAILY
     Route: 048
     Dates: start: 201504, end: 20150907

REACTIONS (2)
  - Prostatic disorder [Recovering/Resolving]
  - Semen volume decreased [Recovering/Resolving]

NARRATIVE: CASE EVENT DATE: 2015
